FAERS Safety Report 23535413 (Version 1)
Quarter: 2024Q1

REPORT INFORMATION
  Report Type: Spontaneous
  Country: US (occurrence: None)
  Receive Date: 20240218
  Receipt Date: 20240218
  Transmission Date: 20240409
  Serious: Yes (Other)
  Sender: FDA-Public Use
  Company Number: 2024A035280

PATIENT
  Sex: Female

DRUGS (3)
  1. SYMBICORT [Suspect]
     Active Substance: BUDESONIDE\FORMOTEROL FUMARATE DIHYDRATE
     Dosage: UNKNOWN UNKNOWN
     Route: 055
  2. BUDESONIDE\FORMOTEROL [Suspect]
     Active Substance: BUDESONIDE\FORMOTEROL
     Dosage: TAKING 2 PUFFS IN THE MORNING AND 2 PUFFS IN THE EVENING (AS PRESCRIBED) UNKNOWN
     Route: 055
  3. BUDESONIDE\FORMOTEROL [Suspect]
     Active Substance: BUDESONIDE\FORMOTEROL
     Dosage: JUST TAKE 2 PUFFS IN THE MORNING UNKNOWN
     Route: 055

REACTIONS (6)
  - Cataract [Unknown]
  - Muscle spasms [Unknown]
  - Visual impairment [Unknown]
  - Illness [Unknown]
  - Device malfunction [Unknown]
  - Device use issue [Unknown]
